FAERS Safety Report 8838267 (Version 2)
Quarter: 2014Q3

REPORT INFORMATION
  Report Type: Report from Study
  Country: US (occurrence: US)
  Receive Date: 20121012
  Receipt Date: 20140918
  Transmission Date: 20150326
  Serious: Yes (Other)
  Sender: FDA-Public Use
  Company Number: US-ROCHE-1130894

PATIENT
  Sex: Male

DRUGS (7)
  1. RITUXAN [Suspect]
     Active Substance: RITUXIMAB
     Indication: MANTLE CELL LYMPHOMA
     Route: 042
     Dates: start: 19980123, end: 19980313
  2. BENADRYL [Concomitant]
     Active Substance: DIPHENHYDRAMINE HYDROCHLORIDE
  3. GRANISETRON [Suspect]
     Active Substance: GRANISETRON
     Indication: PRODUCT USED FOR UNKNOWN INDICATION
     Route: 065
     Dates: start: 19970730
  4. RITUXAN [Suspect]
     Active Substance: RITUXIMAB
     Route: 042
     Dates: start: 19981006, end: 19981027
  5. INTERFERON ALFA-2A [Suspect]
     Active Substance: INTERFERON ALFA-2A
     Indication: PRODUCT USED FOR UNKNOWN INDICATION
     Route: 065
     Dates: start: 199806
  6. TYLENOL [Concomitant]
     Active Substance: ACETAMINOPHEN
     Route: 065
  7. DECADRON [Concomitant]
     Active Substance: DEXAMETHASONE

REACTIONS (16)
  - Increased tendency to bruise [Unknown]
  - Balance disorder [Unknown]
  - Dizziness [Unknown]
  - Cough [Unknown]
  - Nasal congestion [Unknown]
  - Hypotension [Unknown]
  - Platelet count decreased [Unknown]
  - Anaemia [Unknown]
  - Vision blurred [Unknown]
  - Malaise [Unknown]
  - Leukopenia [Unknown]
  - Nausea [Unknown]
  - Bronchospasm [Unknown]
  - Gait disturbance [Unknown]
  - Influenza like illness [Unknown]
  - Lymphoma [Unknown]
